FAERS Safety Report 7409607 (Version 3)
Quarter: 2012Q4

REPORT INFORMATION
  Report Type: Report from Study
  Country: JP (occurrence: JP)
  Receive Date: 20100604
  Receipt Date: 20120911
  Transmission Date: 20130627
  Serious: Yes (Death, Hospitalization, Disabling)
  Sender: FDA-Public Use
  Company Number: JP-BRISTOL-MYERS SQUIBB COMPANY-14901631

PATIENT
  Age: 35 Year
  Sex: Male
  Weight: 66 kg

DRUGS (20)
  1. SPRYCEL [Suspect]
     Indication: CHRONIC MYELOID LEUKAEMIA
     Dosage: 12Jun09-28Jun09:70mg. 29Jun09-05oct09,90mg. 21oct09-29nov09,60mg
     Route: 048
     Dates: end: 20091129
  2. CYTARABINE [Concomitant]
     Indication: CHRONIC MYELOID LEUKAEMIA
     Dosage: Cytarabine oofosphate hydrate CAP
     Route: 048
     Dates: start: 20090305, end: 20091129
  3. HYDROXYCARBAMIDE [Concomitant]
     Indication: CHRONIC MYELOID LEUKAEMIA
     Dosage: CAP
     Route: 048
     Dates: start: 20090319, end: 20091129
  4. RANITIDINE HCL TABS [Concomitant]
     Indication: PROPHYLAXIS
     Route: 048
     Dates: end: 20091104
  5. POTASSIUM CHLORIDE [Concomitant]
     Indication: PROPHYLAXIS
     Dosage: tabs
     Route: 048
     Dates: end: 20091129
  6. DOMIPHEN BROMIDE [Concomitant]
     Indication: PROPHYLAXIS
     Dosage: lozenge
     Route: 048
     Dates: end: 20091129
  7. GARENOXACIN ORAL TABS [Concomitant]
     Indication: PROPHYLAXIS
     Dosage: Garenoxacin mesilate hydrate
     Route: 048
     Dates: end: 20091129
  8. TAKEPRON [Concomitant]
     Indication: PROPHYLAXIS
     Route: 048
     Dates: start: 20090704, end: 20091129
  9. DEFERASIROX [Concomitant]
     Dosage: TAB
     Route: 048
     Dates: start: 20090826, end: 20091102
  10. LOPERAMIDE HCL [Concomitant]
     Indication: DIARRHOEA
     Route: 048
     Dates: start: 20090702, end: 20091129
  11. BERBERINE [Concomitant]
     Indication: DIARRHOEA
     Dosage: Berberine chloride hydrate TAB/Gennoshoko extract
6 D.F= 6 tabs
     Route: 048
     Dates: start: 20090702, end: 20091129
  12. VORICONAZOLE [Concomitant]
     Dosage: tablets
     Route: 048
     Dates: start: 20090914, end: 20091129
  13. ANTIBIOTICS-RESISTANT LACTIC ACID BACTERIA [Concomitant]
     Indication: DIARRHOEA
     Route: 048
     Dates: start: 20090907, end: 20091110
  14. URSO [Concomitant]
     Indication: LIVER DISORDER
     Route: 048
     Dates: start: 20091028, end: 20091117
  15. METHIONINE [Concomitant]
     Indication: LIVER DISORDER
     Route: 048
     Dates: start: 20091028, end: 20091117
  16. GLYCINE [Concomitant]
     Indication: LIVER DISORDER
     Route: 048
     Dates: start: 20091028, end: 20091117
  17. LOXOPROFEN SODIUM [Concomitant]
     Indication: CANCER PAIN
     Route: 048
     Dates: start: 20091026, end: 20091129
  18. REBAMIPIDE [Concomitant]
     Indication: CANCER PAIN
     Route: 048
     Dates: start: 20091026, end: 20091129
  19. KLARICID [Concomitant]
     Indication: INFECTION
     Route: 048
     Dates: start: 20091028, end: 20091129
  20. NASEA [Concomitant]
     Indication: NAUSEA
     Dosage: Tabs
     Route: 048
     Dates: start: 20090613, end: 20091129

REACTIONS (9)
  - Malignant neoplasm progression [Fatal]
  - White blood cell count decreased [Not Recovered/Not Resolved]
  - Neutrophil count decreased [Not Recovered/Not Resolved]
  - Platelet count decreased [Not Recovered/Not Resolved]
  - Anaemia [Not Recovered/Not Resolved]
  - Infection [Recovered/Resolved]
  - Nausea [Recovered/Resolved]
  - Liver disorder [Recovered/Resolved]
  - Pulmonary oedema [Recovered/Resolved]
